FAERS Safety Report 17762533 (Version 1)
Quarter: 2020Q2

REPORT INFORMATION
  Report Type: Spontaneous
  Country: NO (occurrence: NO)
  Receive Date: 20200508
  Receipt Date: 20200508
  Transmission Date: 20200714
  Serious: Yes (Other)
  Sender: FDA-Public Use
  Company Number: NO-MYLANLABS-2020M1045422

PATIENT
  Age: 15 Year
  Sex: Female

DRUGS (8)
  1. METHOTREXATE. [Suspect]
     Active Substance: METHOTREXATE
     Dosage: SSG XIV PROTOCOL POST-OPERATIVE
  2. ADRIAMYCIN [Suspect]
     Active Substance: DOXORUBICIN HYDROCHLORIDE
     Dosage: SSG XIV PROTOCOL PRE-OPERATIVE, 2 CYCLICAL
  3. CISPLATIN. [Suspect]
     Active Substance: CISPLATIN
     Indication: OSTEOSARCOMA
     Dosage: SSG XIV PROTOCOL PRE-OPERTAIVE, 2 CYCLICAL
     Route: 065
  4. CISPLATIN. [Suspect]
     Active Substance: CISPLATIN
     Dosage: 90 MILLIGRAM/SQ. METER, SSG XIV PROTOCOL POST-OPERATIVE
  5. HOLOXAN [Suspect]
     Active Substance: IFOSFAMIDE
     Indication: OSTEOSARCOMA
     Dosage: , 10-12 G/M2 SSG XIV PROTOCOL; POST-OPERATIVE , 2 CYCLICAL
     Route: 042
  6. HOLOXAN [Suspect]
     Active Substance: IFOSFAMIDE
     Indication: SALVAGE THERAPY
     Dosage: UNK
     Route: 042
  7. ADRIAMYCIN [Suspect]
     Active Substance: DOXORUBICIN HYDROCHLORIDE
     Indication: OSTEOSARCOMA
     Dosage: SSG XIV PROTOCOL POST-OPERATIVE, 3 CYCLICAL
     Route: 065
  8. METHOTREXATE. [Suspect]
     Active Substance: METHOTREXATE
     Indication: OSTEOSARCOMA
     Dosage: SSG XIV PROTOCOL PRE-OPERATIVE
     Route: 065

REACTIONS (1)
  - Cardiotoxicity [Recovering/Resolving]
